FAERS Safety Report 4648908-6 (Version None)
Quarter: 2005Q2

REPORT INFORMATION
  Report Type: 
  Country: None (occurrence: None)
  Receive Date: 20050427
  Receipt Date: 20050419
  Transmission Date: 20051028
  Serious: Yes (Hospitalization, Other)
  Sender: FDA-Public Use
  Company Number: USA-2003-0012149

PATIENT
  Age: 51 Year
  Sex: Male

DRUGS (5)
  1. OXYCONTIN [Suspect]
     Indication: PAIN
     Dosage: 40 + 80 MG, Q8H, ORAL
     Route: 048
  2. OXYCODONE HCL [Concomitant]
  3. DURAGESIC (FENTANYL) [Concomitant]
  4. PERCOCET [Concomitant]
  5. NEXIUM [Concomitant]

REACTIONS (22)
  - AKINESIA [None]
  - ANXIETY [None]
  - ARTHRALGIA [None]
  - BACK PAIN [None]
  - BURSITIS [None]
  - CALCULUS URETERIC [None]
  - CHEST PAIN [None]
  - CONDITION AGGRAVATED [None]
  - CONSTIPATION [None]
  - DEPRESSION [None]
  - DRUG DEPENDENCE [None]
  - DRUG WITHDRAWAL SYNDROME [None]
  - FLANK PAIN [None]
  - HYDRONEPHROSIS [None]
  - INADEQUATE ANALGESIA [None]
  - NAUSEA [None]
  - PAIN [None]
  - PAIN IN EXTREMITY [None]
  - POST INFLAMMATORY PIGMENTATION CHANGE [None]
  - SLEEP DISORDER [None]
  - TENDERNESS [None]
  - VOMITING [None]
